FAERS Safety Report 21875378 (Version 1)
Quarter: 2023Q1

REPORT INFORMATION
  Report Type: Spontaneous
  Country: GB (occurrence: GB)
  Receive Date: 20230118
  Receipt Date: 20230118
  Transmission Date: 20230418
  Serious: Yes (Other)
  Sender: FDA-Public Use
  Company Number: GB-009507513-2301GBR005413

PATIENT
  Age: 73 Year
  Sex: Male

DRUGS (1)
  1. PEMBROLIZUMAB [Suspect]
     Active Substance: PEMBROLIZUMAB
     Indication: Epithelioid mesothelioma
     Dosage: 2 CYCLES

REACTIONS (3)
  - Cholestasis [Recovered/Resolved]
  - Biliary tract disorder [Recovered/Resolved]
  - Product use in unapproved indication [Unknown]
